FAERS Safety Report 24780129 (Version 1)
Quarter: 2024Q4

REPORT INFORMATION
  Report Type: Spontaneous
  Country: US (occurrence: US)
  Receive Date: 20241227
  Receipt Date: 20241227
  Transmission Date: 20250114
  Serious: Yes (Hospitalization, Other)
  Sender: Steriscience PTE
  Company Number: US-STERISCIENCE B.V.-2024-ST-002168

PATIENT
  Age: 9 Year
  Sex: Male

DRUGS (7)
  1. MIDAZOLAM [Suspect]
     Active Substance: MIDAZOLAM
     Indication: Febrile infection-related epilepsy syndrome
     Dosage: INFUSIONS
     Route: 065
  2. KETAMINE [Suspect]
     Active Substance: KETAMINE
     Indication: Febrile infection-related epilepsy syndrome
     Dosage: INFUSIONS
     Route: 065
  3. PENTOBARBITAL [Suspect]
     Active Substance: PENTOBARBITAL
     Indication: Febrile infection-related epilepsy syndrome
     Dosage: INFUSIONS
     Route: 065
  4. METHYLPREDNISOLONE [Suspect]
     Active Substance: METHYLPREDNISOLONE
     Indication: Febrile infection-related epilepsy syndrome
     Route: 042
  5. ANAKINRA [Suspect]
     Active Substance: ANAKINRA
     Indication: Febrile infection-related epilepsy syndrome
     Dosage: 4 MILLIGRAM/KILOGRAM, QD
  6. ANAKINRA [Suspect]
     Active Substance: ANAKINRA
     Dosage: 20 MILLIGRAM/KILOGRAM, QD
     Route: 042
  7. IMMUNE GLOBULIN NOS [Suspect]
     Active Substance: IMMUNE GLOBULIN NOS
     Indication: Febrile infection-related epilepsy syndrome
     Dosage: UNK
     Route: 042

REACTIONS (4)
  - Impaired gastric emptying [Unknown]
  - Hypertension [Unknown]
  - Drug ineffective for unapproved indication [Unknown]
  - Hypotension [Unknown]
